FAERS Safety Report 9173180 (Version 2)
Quarter: 2013Q2

REPORT INFORMATION
  Report Type: Spontaneous
  Country: US (occurrence: None)
  Receive Date: 20130314
  Receipt Date: 20130617
  Transmission Date: 20140414
  Serious: Yes (Other)
  Sender: FDA-Public Use
  Company Number: 2013HINLIT0034

PATIENT
  Age: 17 Year
  Sex: Male

DRUGS (3)
  1. LEVETIRACETAM (LEVETIRACETAM) [Suspect]
     Indication: PRODUCT USED FOR UNKNOWN INDICATION
  2. CHLORPROMAZINE (CHLORPROMAZINE) [Concomitant]
  3. PHENYTOIN (PHENYTOIN) [Concomitant]

REACTIONS (1)
  - Pancreatitis acute [None]
